FAERS Safety Report 11912486 (Version 3)
Quarter: 2016Q2

REPORT INFORMATION
  Report Type: Spontaneous
  Country: US (occurrence: US)
  Receive Date: 20160113
  Receipt Date: 20160524
  Transmission Date: 20160815
  Serious: Yes (Hospitalization, Other)
  Sender: FDA-Public Use
  Company Number: US-PFIZER INC-2015475773

PATIENT
  Age: 77 Year
  Sex: Female
  Weight: 38 kg

DRUGS (14)
  1. MEGESTROL [Concomitant]
     Active Substance: MEGESTROL
     Dosage: 40 MG, 1X/DAY
     Dates: start: 201501
  2. VFEND [Suspect]
     Active Substance: VORICONAZOLE
     Dosage: 1 DF, UNK (1 WHOLE PILL AT 1ST 2014)
     Dates: start: 2014
  3. MEGESTROL [Concomitant]
     Active Substance: MEGESTROL
     Indication: APPETITE DISORDER
     Dosage: UNK
     Dates: start: 2014
  4. SINGULAIR [Concomitant]
     Active Substance: MONTELUKAST SODIUM
     Indication: HYPERSENSITIVITY
     Dosage: 10 MG, 1X/DAY
  5. OXYGEN. [Concomitant]
     Active Substance: OXYGEN
     Dosage: UNK
     Dates: start: 2014
  6. DILTIAZEM [Concomitant]
     Active Substance: DILTIAZEM
     Indication: HEART RATE IRREGULAR
     Dosage: 180 MG, 1X/DAY
     Dates: start: 2014
  7. DILTIAZEM [Concomitant]
     Active Substance: DILTIAZEM
     Indication: CARDIAC DISORDER
     Dosage: 30 MG, 2X/DAY
     Route: 048
     Dates: start: 2015
  8. VFEND [Suspect]
     Active Substance: VORICONAZOLE
     Indication: FUNGAL INFECTION
     Dosage: 50 MG, 2X/DAY
  9. VFEND [Suspect]
     Active Substance: VORICONAZOLE
     Dosage: 25 MG, 2X/DAY (0.5 TABLETS BY MOUTH)
     Route: 048
     Dates: start: 20160210
  10. VFEND [Suspect]
     Active Substance: VORICONAZOLE
     Dosage: 25 MG, 2X/DAY (50MG, 1/2 TABLETS 2 TIMES DAILY)
  11. COMBIVENT [Concomitant]
     Active Substance: ALBUTEROL SULFATE\IPRATROPIUM BROMIDE
     Indication: LUNG DISORDER
     Dosage: 20 MCG/100 MCG, 2X/DAY
     Route: 055
  12. COMBIVENT [Concomitant]
     Active Substance: ALBUTEROL SULFATE\IPRATROPIUM BROMIDE
     Dosage: UNK, AS NEEDED (IPRATROPIUM BROMIDE-20 MCG, SALBUTAMOL SULFATE-100 MCG)
  13. VFEND [Suspect]
     Active Substance: VORICONAZOLE
     Indication: ASPERGILLUS INFECTION
     Dosage: 25 MG, 2X/DAY, IN THE MORNING AND IN THE EVENING
     Dates: start: 201501
  14. ADVAIR HFA [Concomitant]
     Active Substance: FLUTICASONE PROPIONATE\SALMETEROL XINAFOATE
     Indication: LUNG DISORDER
     Dosage: UNK, 2X/DAY (250 MCG/50 MCG, 2X/DAY) (2 TIMES DAILY MORNING AND NIGHT)

REACTIONS (5)
  - Alopecia [Recovered/Resolved]
  - Bronchitis [Recovered/Resolved]
  - Pneumonia [Recovered/Resolved]
  - Weight decreased [Recovered/Resolved]
  - White blood cell count increased [Recovered/Resolved]

NARRATIVE: CASE EVENT DATE: 2014
